FAERS Safety Report 24684052 (Version 1)
Quarter: 2024Q4

REPORT INFORMATION
  Report Type: Spontaneous
  Country: US (occurrence: US)
  Receive Date: 20241202
  Receipt Date: 20241202
  Transmission Date: 20250115
  Serious: Yes (Hospitalization)
  Sender: BRISTOL-MYERS SQUIBB COMPANY
  Company Number: US-BRISTOL-MYERS SQUIBB COMPANY-2024-182091

PATIENT
  Age: 82 Year
  Sex: Male
  Weight: 83.3 kg

DRUGS (11)
  1. REVLIMID [Suspect]
     Active Substance: LENALIDOMIDE
     Indication: Plasma cell myeloma
     Dosage: OTHER, TAKE 1 CAP PO X 21 DAYS, THEN 7 DAYS OFF
     Route: 048
     Dates: start: 20230808, end: 20241118
  2. ACYCLOVIR [Concomitant]
     Active Substance: ACYCLOVIR
     Dates: start: 20230316
  3. PROCHLORPERAZINE [Concomitant]
     Active Substance: PROCHLORPERAZINE
     Dates: start: 20220127
  4. CARVEDILOL [Concomitant]
     Active Substance: CARVEDILOL
     Dates: start: 20220127
  5. EZETIMIBE [Concomitant]
     Active Substance: EZETIMIBE
     Dates: start: 20220127
  6. KLOR-CON M20 [Concomitant]
     Active Substance: POTASSIUM CHLORIDE
     Dosage: ER
     Dates: start: 20220127
  7. XARELTO [Concomitant]
     Active Substance: RIVAROXABAN
     Dates: start: 20240919
  8. PANTOPRAZOLE [Concomitant]
     Active Substance: PANTOPRAZOLE
     Dates: start: 20220127
  9. JARDIANCE [Concomitant]
     Active Substance: EMPAGLIFLOZIN
     Dates: start: 20230316
  10. REPATHA [Concomitant]
     Active Substance: EVOLOCUMAB
     Dosage: AUTOINJECTOR
     Dates: start: 20220127
  11. TORSEMIDE [Concomitant]
     Active Substance: TORSEMIDE
     Dates: start: 20220127

REACTIONS (1)
  - Fall [Recovering/Resolving]

NARRATIVE: CASE EVENT DATE: 20241018
